FAERS Safety Report 6010188-7 (Version None)
Quarter: 2008Q4

REPORT INFORMATION
  Report Type: 
  Country: None (occurrence: None)
  Receive Date: 20081218
  Receipt Date: 20081030
  Transmission Date: 20090506
  Serious: Yes (Other)
  Sender: FDA-Public Use
  Company Number: PHHO2008NZ14810

PATIENT
  Sex: Female

DRUGS (9)
  1. TASIGNA [Suspect]
     Indication: SYSTEMIC MASTOCYTOSIS
     Dosage: UNK
     Route: 048
     Dates: end: 20081017
  2. TASIGNA [Suspect]
     Dosage: UNK
     Dates: start: 20081018, end: 20081021
  3. TASIGNA [Suspect]
     Dosage: UNK
     Route: 048
     Dates: start: 20081022, end: 20081028
  4. MAXOLON [Concomitant]
     Indication: NAUSEA
  5. ZOFRAN [Concomitant]
     Indication: NAUSEA
  6. CODALGIN [Concomitant]
     Indication: PAIN
  7. ANTIHISTAMINES [Concomitant]
     Indication: PRURITUS
  8. MOTILIUM [Concomitant]
  9. CETIRIZINE HCL [Concomitant]

REACTIONS (6)
  - ABDOMINAL PAIN UPPER [None]
  - FRUSTRATION [None]
  - LIVER FUNCTION TEST ABNORMAL [None]
  - NAUSEA [None]
  - PALLOR [None]
  - RASH ERYTHEMATOUS [None]
